FAERS Safety Report 7979715-4 (Version None)
Quarter: 2011Q4

REPORT INFORMATION
  Report Type: 
  Country: None (occurrence: None)
  Receive Date: 20111214
  Receipt Date: 20111207
  Transmission Date: 20120403
  Serious: Yes (Hospitalization)
  Sender: FDA-Public Use
  Company Number: JP-B.I. PHARMACEUTICALS,INC./RIDGEFIELD-2011-BP-25189NB

PATIENT
  Sex: Male
  Weight: 64 kg

DRUGS (14)
  1. CANDESARTAN CILEXETIL [Concomitant]
     Indication: HYPERTENSION
     Dosage: 8 MG
     Route: 048
  2. URIEF [Concomitant]
     Indication: BENIGN PROSTATIC HYPERPLASIA
     Dosage: 8 MG
     Route: 048
  3. ASPIRIN [Concomitant]
     Indication: ANGINA PECTORIS
     Dosage: 100 MG
     Route: 048
     Dates: end: 20111014
  4. ADALAT [Concomitant]
     Indication: ANGINA PECTORIS
     Dosage: 40 MG
     Route: 048
  5. UBRETID [Concomitant]
     Indication: HYPOTONIC URINARY BLADDER
     Dosage: 5 MG
     Route: 048
  6. SIGMART [Concomitant]
     Indication: ANGINA PECTORIS
     Dosage: 15 MG
     Route: 048
     Dates: end: 20111011
  7. ALLOPURINOL [Concomitant]
     Indication: HYPERURICAEMIA
     Dosage: 100 MG
     Route: 048
  8. FAMOTIDINE [Concomitant]
     Indication: GASTRIC ULCER
     Dosage: 20 MG
     Route: 048
  9. NEUROTROPIN [Concomitant]
     Indication: CEREBRAL INFARCTION
     Route: 048
  10. CRESTOR [Concomitant]
     Indication: HYPERCHOLESTEROLAEMIA
     Dosage: 2.5 MG
     Route: 048
  11. MOBIC [Concomitant]
     Indication: ARTHRALGIA
     Dosage: 10 MG
     Route: 048
  12. METHYCOBAL [Concomitant]
     Indication: NEUROPATHY PERIPHERAL
     Dosage: 1 MG
     Route: 048
  13. PRADAXA [Suspect]
     Indication: ATRIAL FIBRILLATION
     Dosage: 220 MG
     Route: 048
     Dates: start: 20111011, end: 20111014
  14. JUVELA [Concomitant]
     Indication: NEUROPATHY PERIPHERAL
     Dosage: 200 MG
     Route: 048

REACTIONS (3)
  - MELAENA [None]
  - GASTRIC ULCER HAEMORRHAGE [None]
  - DIVERTICULITIS [None]
